FAERS Safety Report 5985264-5 (Version None)
Quarter: 2008Q4

REPORT INFORMATION
  Report Type: 
  Country: None (occurrence: None)
  Receive Date: 20081203
  Receipt Date: 20081119
  Transmission Date: 20090506
  Serious: Yes (Death)
  Sender: FDA-Public Use
  Company Number: 036386

PATIENT
  Age: 34 Year
  Sex: Male

DRUGS (4)
  1. AMITRIPTYLINE HCL [Suspect]
  2. TRAMADOL HCL AND ACETAMINOPHEN (TRAMADOL HYDROCHLORIDE, ACETAMINOPHEN) [Suspect]
  3. METAXOLONE (METAXOLONE) [Suspect]
  4. OXYCODONE HCL [Suspect]

REACTIONS (3)
  - COMPLETED SUICIDE [None]
  - DRUG TOXICITY [None]
  - MULTIPLE DRUG OVERDOSE INTENTIONAL [None]
